FAERS Safety Report 5446661-X (Version None)
Quarter: 2007Q3

REPORT INFORMATION
  Report Type: 
  Country: None (occurrence: None)
  Receive Date: 20070907
  Receipt Date: 20070823
  Transmission Date: 20080115
  Serious: Yes (Other)
  Sender: FDA-Public Use
  Company Number: GB-SHR-GB-2007-032196

PATIENT

DRUGS (2)
  1. CAMPATH [Suspect]
  2. FLUDARA 50MG I.V. [Suspect]

REACTIONS (1)
  - GUILLAIN-BARRE SYNDROME [None]
